FAERS Safety Report 11485124 (Version 2)
Quarter: 2015Q3

REPORT INFORMATION
  Report Type: Spontaneous
  Country: JP (occurrence: JP)
  Receive Date: 20150909
  Receipt Date: 20150917
  Transmission Date: 20151125
  Serious: Yes (Life-Threatening, Other)
  Sender: FDA-Public Use
  Company Number: JP-GSKJP-JP2015JPN127871AA

PATIENT
  Sex: Male

DRUGS (1)
  1. VOTRIENT [Suspect]
     Active Substance: PAZOPANIB HYDROCHLORIDE
     Indication: HEPATIC ANGIOSARCOMA
     Dosage: 400 MG, 1D
     Route: 048
     Dates: start: 201508, end: 201508

REACTIONS (1)
  - Hepatic angiosarcoma [Unknown]
